FAERS Safety Report 5692264-1 (Version None)
Quarter: 2008Q2

REPORT INFORMATION
  Report Type: 
  Country: None (occurrence: None)
  Receive Date: 20080328
  Receipt Date: 20070313
  Transmission Date: 20081010
  Serious: Yes (Other)
  Sender: FDA-Public Use
  Company Number: PHEH2006US15074

PATIENT
  Age: 63 Year
  Sex: Female

DRUGS (1)
  1. VIVELLE-DOT [Suspect]
     Indication: HORMONE REPLACEMENT THERAPY
     Dosage: 0.05 MG/DAY, TWICE DAILY, TRANSDERMAL
     Route: 062
     Dates: start: 20041201

REACTIONS (1)
  - BLOOD TRIGLYCERIDES INCREASED [None]
